FAERS Safety Report 14782735 (Version 1)
Quarter: 2018Q2

REPORT INFORMATION
  Report Type: Spontaneous
  Country: FR (occurrence: FR)
  Receive Date: 20180420
  Receipt Date: 20180420
  Transmission Date: 20180711
  Serious: Yes (Other)
  Sender: FDA-Public Use
  Company Number: FR-MERCK KGAA-2046130

PATIENT
  Age: 79 Year
  Sex: Female

DRUGS (1)
  1. NOVOTHYROX [Suspect]
     Active Substance: LEVOTHYROXINE SODIUM
     Indication: PRODUCT USED FOR UNKNOWN INDICATION
     Dates: end: 20171004

REACTIONS (27)
  - Oedema peripheral [Recovering/Resolving]
  - Dizziness [Recovering/Resolving]
  - Red blood cell sedimentation rate increased [None]
  - Alopecia [Recovering/Resolving]
  - Suicidal ideation [Recovering/Resolving]
  - General physical health deterioration [Recovering/Resolving]
  - Headache [Recovering/Resolving]
  - Insomnia [Recovering/Resolving]
  - Emotional distress [Recovering/Resolving]
  - Hypokinesia [Recovering/Resolving]
  - Fatigue [Recovering/Resolving]
  - Social avoidant behaviour [Recovering/Resolving]
  - Glycosylated haemoglobin increased [None]
  - Pain in extremity [Recovering/Resolving]
  - Mouth swelling [Recovering/Resolving]
  - Vision blurred [Recovering/Resolving]
  - Loss of personal independence in daily activities [Recovering/Resolving]
  - C-reactive protein increased [None]
  - Feeling cold [Recovering/Resolving]
  - Walking aid user [Recovering/Resolving]
  - Sensory loss [Recovering/Resolving]
  - Gamma-glutamyltransferase increased [None]
  - Dry mouth [Recovering/Resolving]
  - Impaired driving ability [Recovering/Resolving]
  - Family stress [Recovering/Resolving]
  - Gait disturbance [Recovering/Resolving]
  - Platelet count increased [None]

NARRATIVE: CASE EVENT DATE: 20170907
